FAERS Safety Report 8641064 (Version 2)
Quarter: 2012Q4

REPORT INFORMATION
  Report Type: 
  Country: BR (occurrence: BR)
  Receive Date: 20120628
  Receipt Date: 20121031
  Transmission Date: 20130627
  Serious: Yes (Hospitalization)
  Sender: FDA-Public Use
  Company Number: BR-ASTRAZENECA-2012SE34559

PATIENT
  Age: 78 Year
  Sex: Female

DRUGS (4)
  1. NEXIUM [Suspect]
     Indication: REFLUX GASTRITIS
     Route: 048
  2. NEXIUM [Suspect]
     Indication: REFLUX GASTRITIS
     Route: 048
  3. CARVEDILOL [Concomitant]
     Route: 048
  4. UNSPECIFIED MEDICATIONS [Concomitant]

REACTIONS (2)
  - Cardiac failure [Recovered/Resolved]
  - Pulmonary oedema [Recovering/Resolving]
